FAERS Safety Report 9394480 (Version 2)
Quarter: 2013Q3

REPORT INFORMATION
  Report Type: Spontaneous
  Country: US (occurrence: US)
  Receive Date: 20130711
  Receipt Date: 20130723
  Transmission Date: 20140515
  Serious: No
  Sender: FDA-Public Use
  Company Number: US-PFIZER INC-2013201568

PATIENT
  Sex: Female

DRUGS (1)
  1. ADVIL [Suspect]
     Indication: ARTHRALGIA
     Dosage: 1800 MG, UNK
     Dates: start: 201306

REACTIONS (3)
  - Off label use [Unknown]
  - Overdose [Unknown]
  - Local swelling [Unknown]
